FAERS Safety Report 14330611 (Version 1)
Quarter: 2017Q4

REPORT INFORMATION
  Report Type: Report from Study
  Country: None (occurrence: US)
  Receive Date: 20171227
  Receipt Date: 20171227
  Transmission Date: 20180321
  Serious: Yes (Hospitalization)
  Sender: FDA-Public Use
  Company Number: US-ABBVIE-17K-163-2186244-00

PATIENT
  Age: 41 Year
  Sex: Male
  Weight: 47.67 kg

DRUGS (12)
  1. HUMIRA [Suspect]
     Active Substance: ADALIMUMAB
     Route: 058
     Dates: start: 2016, end: 201611
  2. HUMIRA [Suspect]
     Active Substance: ADALIMUMAB
     Route: 058
     Dates: start: 201703, end: 201711
  3. HUMIRA [Suspect]
     Active Substance: ADALIMUMAB
     Indication: RHEUMATOID ARTHRITIS
     Route: 058
     Dates: start: 2006, end: 2007
  4. GABAPENTIN. [Concomitant]
     Active Substance: GABAPENTIN
     Indication: CROHN^S DISEASE
  5. PANTOPRAZOLE [Concomitant]
     Active Substance: PANTOPRAZOLE
     Indication: GASTROOESOPHAGEAL REFLUX DISEASE
  6. TYLENOL [Concomitant]
     Active Substance: ACETAMINOPHEN
     Indication: CROHN^S DISEASE
  7. HUMIRA [Suspect]
     Active Substance: ADALIMUMAB
     Indication: CROHN^S DISEASE
     Route: 058
     Dates: start: 2007, end: 2016
  8. HYDROCODONE [Suspect]
     Active Substance: HYDROCODONE
     Indication: PRODUCT USED FOR UNKNOWN INDICATION
     Route: 065
  9. HUMIRA [Suspect]
     Active Substance: ADALIMUMAB
     Route: 058
     Dates: start: 201712
  10. OXYCODONE [Suspect]
     Active Substance: OXYCODONE
     Indication: PRODUCT USED FOR UNKNOWN INDICATION
     Route: 065
  11. HYOSCYAMINE. [Concomitant]
     Active Substance: HYOSCYAMINE
     Indication: CROHN^S DISEASE
  12. HUMIRA [Suspect]
     Active Substance: ADALIMUMAB
     Route: 058
     Dates: start: 201611, end: 201703

REACTIONS (11)
  - Abdominal adhesions [Recovering/Resolving]
  - Crohn^s disease [Not Recovered/Not Resolved]
  - Abdominal adhesions [Recovered/Resolved]
  - Abdominal adhesions [Recovered/Resolved]
  - Weight decreased [Not Recovered/Not Resolved]
  - Loss of personal independence in daily activities [Not Recovered/Not Resolved]
  - Intestinal obstruction [Recovering/Resolving]
  - Intestinal obstruction [Recovered/Resolved]
  - Nausea [Unknown]
  - Dizziness [Not Recovered/Not Resolved]
  - Intestinal obstruction [Recovered/Resolved]

NARRATIVE: CASE EVENT DATE: 2007
